FAERS Safety Report 18050852 (Version 1)
Quarter: 2020Q3

REPORT INFORMATION
  Report Type: Report from Study
  Country: None (occurrence: TN)
  Receive Date: 20200721
  Receipt Date: 20200721
  Transmission Date: 20201103
  Serious: Yes (Hospitalization)
  Sender: FDA-Public Use
  Company Number: TN-ABBVIE-20K-160-3485838-00

PATIENT
  Age: 39 Year
  Sex: Female

DRUGS (4)
  1. HUMIRA [Suspect]
     Active Substance: ADALIMUMAB
     Route: 058
     Dates: start: 202001, end: 202002
  2. IMUREL [Concomitant]
     Active Substance: AZATHIOPRINE SODIUM
     Indication: CROHN^S DISEASE
     Route: 048
     Dates: start: 2016
  3. VITAPRED [Concomitant]
     Active Substance: PREDNISOLONE
     Indication: INFLAMMATION
     Route: 048
     Dates: start: 20200620
  4. HUMIRA [Suspect]
     Active Substance: ADALIMUMAB
     Indication: CROHN^S DISEASE
     Route: 058
     Dates: start: 20170906, end: 201912

REACTIONS (10)
  - Gastrointestinal pain [Recovered/Resolved]
  - Diarrhoea [Recovered/Resolved]
  - Mineral deficiency [Recovering/Resolving]
  - Inflammation [Recovering/Resolving]
  - Blood calcium decreased [Recovering/Resolving]
  - Weight decreased [Recovering/Resolving]
  - Inflammation [Recovered/Resolved]
  - Abdominal pain [Recovered/Resolved]
  - Back pain [Recovered/Resolved]
  - Decreased appetite [Recovered/Resolved]

NARRATIVE: CASE EVENT DATE: 202003
